FAERS Safety Report 9478355 (Version 1)
Quarter: 2013Q3

REPORT INFORMATION
  Report Type: Spontaneous
  Country: US (occurrence: None)
  Receive Date: 20130822
  Receipt Date: 20130822
  Transmission Date: 20140515
  Serious: Yes (Other)
  Sender: FDA-Public Use
  Company Number: 2013AP007319

PATIENT
  Age: 62 Year
  Sex: Female

DRUGS (2)
  1. ZOLPIDEM TARTRATE [Suspect]
     Indication: INSOMNIA
  2. PAROXETINE [Suspect]
     Indication: ANXIETY

REACTIONS (9)
  - Major depression [None]
  - Delirium [None]
  - Psychotic disorder [None]
  - Homicide [None]
  - Overdose [None]
  - Drug interaction [None]
  - Suicidal behaviour [None]
  - Disorientation [None]
  - Intentional self-injury [None]
